FAERS Safety Report 10182610 (Version 1)
Quarter: 2014Q2

REPORT INFORMATION
  Report Type: Spontaneous
  Country: US (occurrence: None)
  Receive Date: 20140519
  Receipt Date: 20140519
  Transmission Date: 20141212
  Serious: Yes (Other)
  Sender: FDA-Public Use
  Company Number: None

PATIENT
  Age: 49 Year
  Sex: Female

DRUGS (1)
  1. TECFIDERA 240MG BIOGEN IDEC [Suspect]
     Indication: MULTIPLE SCLEROSIS
     Dosage: 1 CAPSULE BID ORAL
     Route: 048
     Dates: start: 20140206, end: 20140516

REACTIONS (3)
  - Blood urine present [None]
  - Middle ear effusion [None]
  - Rhinorrhoea [None]
